FAERS Safety Report 5152760-2 (Version None)
Quarter: 2006Q4

REPORT INFORMATION
  Report Type: 
  Country: None (occurrence: None)
  Receive Date: 20060918
  Receipt Date: 20050824
  Transmission Date: 20070319
  Serious: Yes (Other)
  Sender: FDA-Public Use
  Company Number: US-JNJFOC-20050605691

PATIENT
  Age: 32 Year
  Sex: Female

DRUGS (1)
  1. TOPAMAX [Suspect]
     Indication: MIGRAINE
     Dosage: 100 MG 2 IN 1 DAY, UNKNOWN
     Route: 065

REACTIONS (1)
  - PANCREATITIS [None]
